FAERS Safety Report 22941992 (Version 6)
Quarter: 2024Q2

REPORT INFORMATION
  Report Type: Spontaneous
  Country: US (occurrence: None)
  Receive Date: 20230914
  Receipt Date: 20240503
  Transmission Date: 20240716
  Serious: Yes (Hospitalization, Disabling, Other)
  Sender: FDA-Public Use
  Company Number: US-ROCHE-3418386

PATIENT
  Age: 44 Year
  Sex: Male
  Weight: 111.23 kg

DRUGS (9)
  1. OCREVUS [Suspect]
     Active Substance: OCRELIZUMAB
     Indication: Secondary progressive multiple sclerosis
     Dosage: ONGOING: NO
     Route: 065
  2. KLONOPIN [Suspect]
     Active Substance: CLONAZEPAM
     Indication: Product used for unknown indication
     Route: 065
  3. MAVENCLAD [Concomitant]
     Active Substance: CLADRIBINE
  4. BUPROPION [Concomitant]
     Active Substance: BUPROPION
     Dosage: TAKE 1 TABLET BY MOUTH TWO TIMES DAILY.
  5. CHOLECALCIFEROL [Concomitant]
     Active Substance: CHOLECALCIFEROL
     Dosage: TAKE 5,000 UNITS BY MOUTH DAILY.
  6. DALFAMPRIDINE [Concomitant]
     Active Substance: DALFAMPRIDINE
     Dosage: TAKE 10 MG BY MOUTH TWO TIMES DAILY.
  7. PROPRANOLOL [Concomitant]
     Active Substance: PROPRANOLOL HYDROCHLORIDE
     Dosage: TAKE 1 CAPSULE BY MOUTH DAILY
  8. ROSUVASTATIN [Concomitant]
     Active Substance: ROSUVASTATIN
     Dosage: TAKE 10 MG BY MOUTH NIGHTLY.
  9. VENLAFAXINE [Concomitant]
     Active Substance: VENLAFAXINE HYDROCHLORIDE

REACTIONS (14)
  - COVID-19 [Unknown]
  - Disease progression [Unknown]
  - JC polyomavirus test positive [Unknown]
  - Multiple sclerosis [Unknown]
  - Pain [Unknown]
  - Fall [Unknown]
  - Peroneal nerve palsy [Unknown]
  - Hypokinesia [Unknown]
  - Balance disorder [Unknown]
  - Tremor [Unknown]
  - Impaired work ability [Unknown]
  - Relapsing multiple sclerosis [Unknown]
  - Cerebrovascular accident [Unknown]
  - Multiple sclerosis [Unknown]

NARRATIVE: CASE EVENT DATE: 20201224
